FAERS Safety Report 22630205 (Version 1)
Quarter: 2023Q2

REPORT INFORMATION
  Report Type: Spontaneous
  Country: CN (occurrence: CN)
  Receive Date: 20230622
  Receipt Date: 20230622
  Transmission Date: 20230722
  Serious: Yes (Hospitalization)
  Sender: FDA-Public Use
  Company Number: CN-JNJFOC-20230638022

PATIENT
  Age: 54 Year
  Sex: Male
  Weight: 72 kg

DRUGS (7)
  1. REMICADE [Suspect]
     Active Substance: INFLIXIMAB
     Indication: Colitis ulcerative
     Dosage: 1ST INFUSION
     Route: 041
     Dates: start: 20220701
  2. REMICADE [Suspect]
     Active Substance: INFLIXIMAB
     Dosage: 2ND INFUSION
     Route: 041
     Dates: start: 20220714
  3. REMICADE [Suspect]
     Active Substance: INFLIXIMAB
     Dosage: 3RD INFUSION
     Route: 041
     Dates: start: 20220811
  4. REMICADE [Suspect]
     Active Substance: INFLIXIMAB
     Dosage: 4RTH INFUSION
     Route: 041
     Dates: start: 20221008
  5. REMICADE [Suspect]
     Active Substance: INFLIXIMAB
     Dosage: 5TH INFUSION
     Route: 041
     Dates: start: 20221202
  6. REMICADE [Suspect]
     Active Substance: INFLIXIMAB
     Dosage: 400 MG IVGTT FOR 3 HOURS, AND 5 MG INFLIXIMAB PRE-DEXAMETHASONE SODIUM PHOSPHATE INJECTION IVGTT INT
     Route: 041
     Dates: start: 20230127, end: 20230127
  7. REMICADE [Suspect]
     Active Substance: INFLIXIMAB
     Dosage: 7TH CYCLE OF INFLIXIMAB
     Route: 041
     Dates: start: 20230327

REACTIONS (2)
  - Rash [Recovered/Resolved]
  - COVID-19 [Unknown]

NARRATIVE: CASE EVENT DATE: 20221201
